FAERS Safety Report 12242179 (Version 4)
Quarter: 2016Q3

REPORT INFORMATION
  Report Type: Report from Study
  Country: IT (occurrence: IT)
  Receive Date: 20160406
  Receipt Date: 20160707
  Transmission Date: 20161109
  Serious: Yes (Hospitalization, Other)
  Sender: FDA-Public Use
  Company Number: IT-VERTEX PHARMACEUTICALS-2016-002132

PATIENT
  Age: 35 Year
  Sex: Male
  Weight: 57 kg

DRUGS (5)
  1. URSODEOXYCHOLIC ACID [Concomitant]
     Active Substance: URSODIOL
  2. ORKAMBI [Suspect]
     Active Substance: IVACAFTOR\LUMACAFTOR
     Indication: CYSTIC FIBROSIS
     Dosage: 400-250 MG, QD
     Route: 048
     Dates: start: 20160302, end: 20160330
  3. SALBUTAMOL [Concomitant]
     Active Substance: ALBUTEROL
  4. BUDESONIDE. [Concomitant]
     Active Substance: BUDESONIDE
  5. PANCREATIC ENZYMES [Concomitant]
     Active Substance: UNSPECIFIED INGREDIENT

REACTIONS (4)
  - Acute respiratory failure [Recovered/Resolved]
  - Obstructive airways disorder [Recovered/Resolved]
  - Rash generalised [Recovered/Resolved]
  - Interstitial lung disease [Recovered/Resolved]

NARRATIVE: CASE EVENT DATE: 20160329
